FAERS Safety Report 7871186-1 (Version None)
Quarter: 2011Q4

REPORT INFORMATION
  Report Type: 
  Country: None (occurrence: None)
  Receive Date: 20111003
  Receipt Date: 20101112
  Transmission Date: 20120403
  Serious: Yes (Other)
  Sender: FDA-Public Use
  Company Number: 255232USA

PATIENT
  Age: 51 Year
  Sex: Female

DRUGS (2)
  1. FLUOXETINE [Suspect]
     Indication: DEPRESSION
     Dosage: (20 MG),ORAL
     Route: 048
     Dates: start: 20101008, end: 20101104
  2. CLONAZEPAM [Concomitant]

REACTIONS (11)
  - VOMITING [None]
  - INSOMNIA [None]
  - TREMOR [None]
  - DYSKINESIA [None]
  - CHEST DISCOMFORT [None]
  - NAUSEA [None]
  - SEROTONIN SYNDROME [None]
  - DECREASED APPETITE [None]
  - ABASIA [None]
  - MUSCULAR WEAKNESS [None]
  - HYPERTENSION [None]
